FAERS Safety Report 10331232 (Version 1)
Quarter: 2014Q3

REPORT INFORMATION
  Report Type: Spontaneous
  Country: US (occurrence: US)
  Receive Date: 20140722
  Receipt Date: 20140722
  Transmission Date: 20150326
  Serious: No
  Sender: FDA-Public Use
  Company Number: US-BAYER-2014-108607

PATIENT
  Age: 22 Year
  Sex: Female

DRUGS (1)
  1. MIRENA [Suspect]
     Active Substance: LEVONORGESTREL
     Indication: CONTRACEPTION
     Dosage: 20 MCG/24HR, CONT
     Route: 015
     Dates: start: 201312, end: 20140227

REACTIONS (8)
  - Infertility female [Not Recovered/Not Resolved]
  - Cyst [None]
  - Menorrhagia [None]
  - Depression [None]
  - Dysmenorrhoea [None]
  - Abdominal pain lower [None]
  - Weight increased [None]
  - Ovulation pain [None]

NARRATIVE: CASE EVENT DATE: 2013
